FAERS Safety Report 8238609-X (Version None)
Quarter: 2012Q1

REPORT INFORMATION
  Report Type: 
  Country: None (occurrence: None)
  Receive Date: 20120327
  Receipt Date: 20120321
  Transmission Date: 20120608
  Serious: Yes (Other)
  Sender: FDA-Public Use
  Company Number: US-BAYER-200829316NA

PATIENT
  Sex: Male
  Weight: 86 kg

DRUGS (28)
  1. MAGNEVIST [Suspect]
     Indication: NUCLEAR MAGNETIC RESONANCE IMAGING ABDOMINAL
  2. GADOLINIUM IN UNSPECIFIED DRUG [Suspect]
     Indication: DIZZINESS
     Dosage: UNK
     Dates: start: 20061023, end: 20061023
  3. GADOLINIUM IN UNSPECIFIED DRUG [Suspect]
     Indication: ANGIOGRAM
  4. OPTIMARK [Suspect]
     Indication: NUCLEAR MAGNETIC RESONANCE IMAGING
  5. ACTONEL [Concomitant]
  6. METOPROLOL SUCCINATE [Concomitant]
     Dosage: UNK
     Dates: start: 20080101
  7. BENICAR [Concomitant]
     Dosage: UNK
     Dates: start: 19980101
  8. NORVASC [Concomitant]
     Dosage: UNK
     Dates: start: 19980101, end: 20070101
  9. HYDRALAZINE HCL [Concomitant]
  10. TAMSULOSIN HCL [Concomitant]
  11. IRON SULFATETHIAMIN COMPOUND TAB [Concomitant]
  12. POTASSIUM [Concomitant]
  13. PROHANCE [Suspect]
     Indication: NUCLEAR MAGNETIC RESONANCE IMAGING
  14. TRIAMTEREN HCT [Concomitant]
  15. AMIODARONE HCL [Concomitant]
     Dosage: UNK
     Dates: start: 19980101
  16. DEXAMETHASONE [Concomitant]
  17. OMEPRAZOLE [Concomitant]
  18. LYRICA [Concomitant]
     Dosage: UNK
     Dates: start: 20080101
  19. SILODOSIN [Concomitant]
  20. MAGNEVIST [Suspect]
     Indication: NUCLEAR MAGNETIC RESONANCE IMAGING
     Dosage: 19 ML, ONCE
     Route: 042
     Dates: start: 20080721, end: 20080721
  21. MAGNEVIST [Suspect]
     Indication: ASTHENIA
  22. METFORMIN HCL [Concomitant]
  23. SIMVASTATIN [Concomitant]
  24. OMNISCAN [Suspect]
     Indication: NUCLEAR MAGNETIC RESONANCE IMAGING BRAIN
     Dosage: UNK, ONCE
     Dates: start: 20050811, end: 20050811
  25. MULTIHANCE [Suspect]
     Indication: NUCLEAR MAGNETIC RESONANCE IMAGING
  26. COREG [Concomitant]
     Dosage: UNK
     Dates: start: 19980101
  27. GADOLINIUM IN UNSPECIFIED DRUG [Suspect]
     Indication: NUCLEAR MAGNETIC RESONANCE IMAGING
     Dosage: UNK UNK, ONCE
     Dates: start: 20050521, end: 20050521
  28. WARFARIN SODIUM [Concomitant]
     Dosage: UNK
     Dates: start: 19980101

REACTIONS (13)
  - MOBILITY DECREASED [None]
  - SKIN DISORDER [None]
  - RENAL DISORDER [None]
  - MAJOR DEPRESSION [None]
  - IMMOBILE [None]
  - INJURY [None]
  - EMOTIONAL DISTRESS [None]
  - GENERAL PHYSICAL HEALTH DETERIORATION [None]
  - NEPHROGENIC SYSTEMIC FIBROSIS [None]
  - ANXIETY [None]
  - RASH [None]
  - DISCOMFORT [None]
  - PAIN [None]
